FAERS Safety Report 17260611 (Version 1)
Quarter: 2020Q1

REPORT INFORMATION
  Report Type: Spontaneous
  Country: US (occurrence: US)
  Receive Date: 20200113
  Receipt Date: 20200113
  Transmission Date: 20200409
  Serious: No
  Sender: FDA-Public Use
  Company Number: US-CELGENEUS-USA-20200101808

PATIENT
  Sex: Female

DRUGS (1)
  1. REVLIMID [Suspect]
     Active Substance: LENALIDOMIDE
     Indication: PLASMA CELL MYELOMA
     Dosage: 25 MILLIGRAM
     Route: 048
     Dates: start: 201910

REACTIONS (7)
  - Blister [Unknown]
  - Vision blurred [Unknown]
  - Asthenopia [Unknown]
  - Hypoaesthesia [Unknown]
  - Xanthopsia [Unknown]
  - Musculoskeletal chest pain [Unknown]
  - Dry eye [Unknown]
